FAERS Safety Report 8619855 (Version 3)
Quarter: 2012Q4

REPORT INFORMATION
  Report Type: Report from Study
  Country: FI (occurrence: FI)
  Receive Date: 20120618
  Receipt Date: 20121002
  Transmission Date: 20130627
  Serious: Yes (Hospitalization)
  Sender: FDA-Public Use
  Company Number: FI-NOVOPROD-353502

PATIENT
  Age: 57 Year
  Sex: Male
  Weight: 94.3 kg

DRUGS (4)
  1. LIRAGLUTIDE FLEXPEN [Suspect]
     Indication: OBESITY
     Dosage: 0.6 mg, qd
     Route: 058
     Dates: start: 20110621
  2. LIRAGLUTIDE FLEXPEN [Suspect]
     Dosage: 3.0 mg, qd
     Route: 058
     Dates: start: 20110719, end: 20120506
  3. LIRAGLUTIDE FLEXPEN [Suspect]
     Dosage: 3.0 mg, qd
     Route: 058
     Dates: start: 20120522
  4. AZAMUN [Concomitant]
     Indication: COLITIS ULCERATIVE
     Dosage: 200.0 mg, qd
     Dates: start: 20120615

REACTIONS (1)
  - Colitis ulcerative [Recovered/Resolved]
